FAERS Safety Report 11038604 (Version 1)
Quarter: 2015Q2

REPORT INFORMATION
  Report Type: Spontaneous
  Country: NL (occurrence: None)
  Receive Date: 20150415
  Receipt Date: 20150415
  Transmission Date: 20150821
  Serious: Yes (Hospitalization)
  Sender: FDA-Public Use
  Company Number: FK201501712

PATIENT
  Age: 55 Year
  Sex: Female

DRUGS (3)
  1. METHOTREXATE (MANUFACTURER UNKNOWN) (METHOTREXATE) (METHOTREXATE) [Suspect]
     Active Substance: METHOTREXATE
     Indication: PSORIATIC ARTHROPATHY
     Dosage: 1 IN 1 WK
     Dates: end: 201203
  2. LITHIUM. [Suspect]
     Active Substance: LITHIUM
     Indication: PSORIATIC ARTHROPATHY
     Dosage: D
  3. FOLIC ACID (FOLIC ACID) [Concomitant]
     Active Substance: FOLIC ACID

REACTIONS (4)
  - Pneumonia [None]
  - Pancytopenia [None]
  - Drug interaction [None]
  - Klebsiella infection [None]

NARRATIVE: CASE EVENT DATE: 201203
